FAERS Safety Report 16738413 (Version 10)
Quarter: 2022Q3

REPORT INFORMATION
  Report Type: Report from Study
  Country: JP (occurrence: JP)
  Receive Date: 20190825
  Receipt Date: 20220909
  Transmission Date: 20221027
  Serious: Yes (Hospitalization)
  Sender: FDA-Public Use
  Company Number: JP-ABBVIE-17P-087-2058751-00

PATIENT
  Age: 47 Year
  Sex: Male
  Weight: 60 kg

DRUGS (14)
  1. CARBIDOPA\LEVODOPA [Suspect]
     Active Substance: CARBIDOPA\LEVODOPA
     Indication: Product used for unknown indication
     Dosage: CD 1.2 ML/HR FOR 16 HR MD 5.3 ML
     Route: 050
     Dates: start: 20170713, end: 20170714
  2. CARBIDOPA\LEVODOPA [Suspect]
     Active Substance: CARBIDOPA\LEVODOPA
     Dosage: MD 8.3 ML, CD 1.9 ML/HR FOR 16 HR, ED  1.2 ML/UNIT
     Route: 050
     Dates: start: 20170721, end: 20180115
  3. CARBIDOPA\LEVODOPA [Suspect]
     Active Substance: CARBIDOPA\LEVODOPA
     Dosage: MD 9.3 ML?CD 2.2 ML/HR FOR 16 HRS?ED 2.0 ML/UNIT FOR 1 TIME
     Route: 050
     Dates: start: 20180116, end: 20190104
  4. CARBIDOPA\LEVODOPA [Suspect]
     Active Substance: CARBIDOPA\LEVODOPA
     Dosage: MD 9.3 ML?CD 2.2 ML/HR FOR 16HR?ED 2.5 ML/UNIT FOR 1 TIME
     Route: 050
     Dates: start: 20190104
  5. CARBIDOPA\LEVODOPA [Suspect]
     Active Substance: CARBIDOPA\LEVODOPA
     Route: 050
  6. ROTIGOTINE [Concomitant]
     Active Substance: ROTIGOTINE
     Indication: Parkinson^s disease
     Route: 062
     Dates: end: 20170724
  7. ROTIGOTINE [Concomitant]
     Active Substance: ROTIGOTINE
     Route: 062
     Dates: start: 20170725
  8. AMANTADINE HYDROCHLORIDE [Concomitant]
     Active Substance: AMANTADINE HYDROCHLORIDE
     Indication: Parkinson^s disease
     Route: 048
     Dates: end: 20180121
  9. AMANTADINE HYDROCHLORIDE [Concomitant]
     Active Substance: AMANTADINE HYDROCHLORIDE
     Dates: start: 20190103, end: 20190123
  10. AMANTADINE HYDROCHLORIDE [Concomitant]
     Active Substance: AMANTADINE HYDROCHLORIDE
     Route: 048
     Dates: start: 20190124
  11. MANIDIPINE HYDROCHLORIDE [Concomitant]
     Active Substance: MANIDIPINE HYDROCHLORIDE
     Indication: Prophylaxis
     Route: 048
     Dates: start: 20180122
  12. MANIDIPINE HYDROCHLORIDE [Concomitant]
     Active Substance: MANIDIPINE HYDROCHLORIDE
     Route: 048
     Dates: start: 20180123, end: 20180402
  13. MAGNESIUM OXIDE [Concomitant]
     Active Substance: MAGNESIUM OXIDE
     Indication: Prophylaxis
     Route: 048
  14. ROPINIROLE HYDROCHLORIDE [Concomitant]
     Active Substance: ROPINIROLE HYDROCHLORIDE
     Indication: Parkinson^s disease
     Route: 048
     Dates: start: 20190626

REACTIONS (17)
  - Gastric ulcer [Recovering/Resolving]
  - Parkinson^s disease [Unknown]
  - Incorrect route of product administration [Unknown]
  - Device connection issue [Recovered/Resolved]
  - Device kink [Recovered/Resolved]
  - Mobility decreased [Unknown]
  - Device breakage [Unknown]
  - Device breakage [Unknown]
  - Device leakage [Unknown]
  - Speech disorder [Unknown]
  - Malaise [Unknown]
  - Constipation [Not Recovered/Not Resolved]
  - Insomnia [Not Recovered/Not Resolved]
  - Unevaluable event [Unknown]
  - Bezoar [Recovered/Resolved]
  - Therapeutic product effect incomplete [Unknown]
  - Pneumonia aspiration [Recovered/Resolved]

NARRATIVE: CASE EVENT DATE: 20170101
